FAERS Safety Report 19692559 (Version 1)
Quarter: 2021Q3

REPORT INFORMATION
  Report Type: Report from Study
  Country: IT (occurrence: IT)
  Receive Date: 20210812
  Receipt Date: 20210812
  Transmission Date: 20211014
  Serious: Yes (Hospitalization)
  Sender: FDA-Public Use
  Company Number: IT-MYLANLABS-2021M1050237

PATIENT
  Age: 8 Year
  Sex: Female

DRUGS (4)
  1. OXACILLIN [Suspect]
     Active Substance: OXACILLIN SODIUM
     Indication: CELLULITIS
     Dosage: UNK
     Route: 065
  2. OXACILLIN [Suspect]
     Active Substance: OXACILLIN SODIUM
     Indication: LOCALISED INFECTION
  3. CLINDAMYCIN. [Suspect]
     Active Substance: CLINDAMYCIN
     Indication: CELLULITIS
     Dosage: UNK
     Route: 065
  4. CLINDAMYCIN. [Suspect]
     Active Substance: CLINDAMYCIN
     Indication: LOCALISED INFECTION

REACTIONS (1)
  - Drug reaction with eosinophilia and systemic symptoms [Recovered/Resolved]
